FAERS Safety Report 4864953-X (Version None)
Quarter: 2005Q4

REPORT INFORMATION
  Report Type: 
  Country: None (occurrence: None)
  Receive Date: 20051219
  Receipt Date: 20051209
  Transmission Date: 20060501
  Serious: Yes (Life-Threatening, Hospitalization)
  Sender: FDA-Public Use
  Company Number: MK200512-0135-1

PATIENT
  Age: 42 Year
  Sex: Male
  Weight: 76 kg

DRUGS (16)
  1. OPTIRAY 350 [Suspect]
     Indication: ARTERIOGRAM CORONARY
     Dates: start: 20050308, end: 20050308
  2. HEPARIN [Suspect]
     Dosage: 8000 IU, (1000 IU/HR), IV
     Route: 042
     Dates: start: 20050308, end: 20050308
  3. INTEGRILIN [Suspect]
     Dosage: 267 MG, (2UG/KG/MIN), IV
     Route: 042
     Dates: start: 20050308, end: 20050309
  4. PLAVIX [Concomitant]
  5. ZANTAC [Concomitant]
  6. ASPIRIN [Concomitant]
  7. ZOCOR [Concomitant]
  8. CAPTOPRIL [Concomitant]
  9. TOPROL-XL [Concomitant]
  10. TRAZODONE HCL [Concomitant]
  11. NTG (GLYCERYL TRINITRATE) [Concomitant]
  12. LOPRESSOR [Concomitant]
  13. AMBIEN [Concomitant]
  14. NITROGLYCERIN [Concomitant]
  15. BENADRYL [Concomitant]
  16. DILAUDID [Concomitant]

REACTIONS (4)
  - CARDIAC PROCEDURE COMPLICATION [None]
  - NON-CARDIAC CHEST PAIN [None]
  - PLEURITIC PAIN [None]
  - VENTRICULAR FIBRILLATION [None]
